FAERS Safety Report 21080899 (Version 7)
Quarter: 2022Q3

REPORT INFORMATION
  Report Type: Report from Study
  Country: KR (occurrence: KR)
  Receive Date: 20220714
  Receipt Date: 20220902
  Transmission Date: 20221027
  Serious: Yes (Other)
  Sender: FDA-Public Use
  Company Number: KR-TAKEDA-2022TUS045552

PATIENT
  Sex: Male
  Weight: 76.5 kg

DRUGS (27)
  1. IXAZOMIB [Suspect]
     Active Substance: IXAZOMIB
     Indication: Plasma cell myeloma
     Dosage: 3 MILLIGRAM, QD
     Route: 065
     Dates: start: 20220127
  2. IXAZOMIB [Suspect]
     Active Substance: IXAZOMIB
     Dosage: 2.3 MILLIGRAM, QD
     Route: 065
     Dates: start: 20220428
  3. DEXAMETHASONE [Suspect]
     Active Substance: DEXAMETHASONE
     Indication: Plasma cell myeloma
     Dosage: 10 MILLIGRAM, QD
     Route: 065
     Dates: start: 20220203, end: 20220317
  4. LENALIDOMIDE [Suspect]
     Active Substance: LENALIDOMIDE
     Indication: Plasma cell myeloma
     Dosage: 15 MILLIGRAM, QD
     Route: 065
     Dates: start: 20220127
  5. GOMCEPHIN [Concomitant]
     Indication: Urinary tract infection
     Dosage: 2 GRAM
     Route: 042
     Dates: start: 20220320, end: 20220410
  6. GOMCEPHIN [Concomitant]
     Indication: Septic shock
  7. LINAGLIPTIN\METFORMIN HYDROCHLORIDE [Concomitant]
     Active Substance: LINAGLIPTIN\METFORMIN HYDROCHLORIDE
     Indication: Diabetes mellitus
     Dosage: UNK
     Route: 048
  8. VASTINAN MR [Concomitant]
     Indication: Angina pectoris
     Dosage: 35 MILLIGRAM
     Route: 048
  9. PIPERACILLIN SODIUM\TAZOBACTAM SODIUM [Concomitant]
     Active Substance: PIPERACILLIN SODIUM\TAZOBACTAM SODIUM
     Indication: Urinary tract infection
     Dosage: 2.25 GRAM
     Route: 042
     Dates: start: 20220326, end: 20220402
  10. PIPERACILLIN SODIUM\TAZOBACTAM SODIUM [Concomitant]
     Active Substance: PIPERACILLIN SODIUM\TAZOBACTAM SODIUM
     Indication: Septic shock
  11. LAMINA-G [Concomitant]
     Indication: Gastrointestinal haemorrhage
     Dosage: 20 MILLILITER
     Route: 048
     Dates: start: 20220406, end: 20220408
  12. PREDNISOLONE [Concomitant]
     Active Substance: PREDNISOLONE
     Indication: Adrenal insufficiency
     Dosage: 5 MILLIGRAM
     Route: 048
  13. FEBUXOSTAT [Concomitant]
     Active Substance: FEBUXOSTAT
     Indication: Blood uric acid increased
     Dosage: 40 MILLIGRAM
     Route: 048
  14. FOTAGEL [Concomitant]
     Indication: Diarrhoea
     Dosage: 20 MILLILITER
     Route: 048
     Dates: start: 20220224
  15. TYLENOL 8HR [Concomitant]
     Active Substance: ACETAMINOPHEN
     Indication: Myalgia
     Dosage: 1300 MILLIGRAM
     Route: 048
     Dates: start: 20220514
  16. VESICARE [Concomitant]
     Active Substance: SOLIFENACIN SUCCINATE
     Indication: Pollakiuria
     Dosage: 5 MILLIGRAM
     Route: 048
     Dates: start: 20220411
  17. CHOLINE ALFOSCERATE [Concomitant]
     Active Substance: CHOLINE ALFOSCERATE
     Indication: Dementia
     Dosage: 400 MILLIGRAM
     Route: 048
  18. HARNAL [Concomitant]
     Active Substance: TAMSULOSIN HYDROCHLORIDE
     Indication: Pollakiuria
     Dosage: 0.2 MILLIGRAM
     Route: 048
     Dates: start: 20220411
  19. LOPERAMIDE [Concomitant]
     Active Substance: LOPERAMIDE
     Indication: Diarrhoea
     Dosage: 2 MILLIGRAM
     Route: 048
     Dates: start: 20220331, end: 20220419
  20. REBAMIPIDE [Concomitant]
     Active Substance: REBAMIPIDE
     Indication: Gastrointestinal haemorrhage
     Dosage: 150 MILLIGRAM
     Route: 048
     Dates: start: 20220406, end: 20220427
  21. PANTOPRAZOLE SODIUM [Concomitant]
     Active Substance: PANTOPRAZOLE SODIUM
     Indication: Gastrointestinal haemorrhage
     Dosage: 40 MILLIGRAM
     Route: 048
     Dates: start: 20220408, end: 20220427
  22. Cavid [Concomitant]
     Indication: Osteopenia
     Dosage: UNK
     Route: 048
  23. NEUTOIN [Concomitant]
     Indication: Dementia
     Dosage: 5 MILLIGRAM
     Route: 048
  24. Cicorox [Concomitant]
     Indication: Arteriosclerosis
     Dosage: 1 GRAM
     Route: 048
  25. FERROUS SULFATE\PROTEASE [Concomitant]
     Active Substance: FERROUS SULFATE\PROTEASE
     Indication: Anaemia
     Dosage: UNK
     Route: 048
     Dates: start: 20220707
  26. MIRCERA [Concomitant]
     Active Substance: METHOXY POLYETHYLENE GLYCOL-EPOETIN BETA
     Indication: Anaemia
     Dosage: 360 MICROGRAM
     Route: 058
     Dates: start: 20220707
  27. FOLIC ACID [Concomitant]
     Active Substance: FOLIC ACID
     Indication: Anaemia
     Dosage: 1 MILLIGRAM
     Route: 048

REACTIONS (1)
  - Duodenal ulcer [Recovered/Resolved]

NARRATIVE: CASE EVENT DATE: 20220428
